FAERS Safety Report 12256534 (Version 1)
Quarter: 2016Q2

REPORT INFORMATION
  Report Type: Spontaneous
  Country: US (occurrence: None)
  Receive Date: 20160411
  Receipt Date: 20160411
  Transmission Date: 20160815
  Serious: Yes (Disabling)
  Sender: FDA-Public Use
  Company Number: None

PATIENT
  Age: 57 Year
  Sex: Female
  Weight: 98.43 kg

DRUGS (1)
  1. CIPROFLOXACIN, 500 MG [Suspect]
     Active Substance: CIPROFLOXACIN
     Indication: URINARY TRACT INFECTION
     Route: 048

REACTIONS (10)
  - Cystitis interstitial [None]
  - Fatigue [None]
  - Tendon rupture [None]
  - Retinal detachment [None]
  - Vertigo [None]
  - Orthostatic hypotension [None]
  - Arthralgia [None]
  - Dizziness [None]
  - Fall [None]
  - Clostridium difficile infection [None]

NARRATIVE: CASE EVENT DATE: 20130712
